FAERS Safety Report 4417820-X (Version None)
Quarter: 2004Q3

REPORT INFORMATION
  Report Type: 
  Country: None (occurrence: None)
  Receive Date: 20040803
  Receipt Date: 20040719
  Transmission Date: 20050211
  Serious: No
  Sender: FDA-Public Use
  Company Number: 2004CG01446

PATIENT
  Age: 68 Year
  Sex: Female

DRUGS (4)
  1. ROPIVACAINE [Suspect]
     Indication: LOCAL ANAESTHESIA
     Dosage: 190 MG ONCE IF
  2. ASPIRIN [Concomitant]
  3. MIDAZOLAM [Concomitant]
  4. NITROUS OXIDE [Concomitant]

REACTIONS (7)
  - BLOOD PRESSURE DECREASED [None]
  - CLONUS [None]
  - DRUG TOXICITY [None]
  - HEART RATE DECREASED [None]
  - LOSS OF CONSCIOUSNESS [None]
  - MEDICATION ERROR [None]
  - RESPIRATORY ARREST [None]
